FAERS Safety Report 8949953 (Version 2)
Quarter: 2014Q1

REPORT INFORMATION
  Report Type: Report from Study
  Country: US (occurrence: US)
  Receive Date: 20121205
  Receipt Date: 20140307
  Transmission Date: 20141002
  Serious: Yes (Hospitalization)
  Sender: FDA-Public Use
  Company Number: US-US-EMD SERONO, INC.-7179122

PATIENT
  Age: 58 Year
  Sex: Female

DRUGS (2)
  1. REBIF [Suspect]
     Indication: MULTIPLE SCLEROSIS
     Route: 058
     Dates: start: 20120807, end: 20130720
  2. INSULIN [Concomitant]
     Indication: DIABETES MELLITUS

REACTIONS (8)
  - Large intestinal obstruction [Recovered/Resolved]
  - Catatonia [Recovered/Resolved]
  - Encephalopathy [Recovered/Resolved]
  - Decubitus ulcer [Recovered/Resolved]
  - Osteomyelitis [Recovered/Resolved]
  - Urinary tract infection [Recovered/Resolved]
  - Enterococcal infection [Recovered/Resolved]
  - Immune system disorder [Recovered/Resolved]
